FAERS Safety Report 13978805 (Version 1)
Quarter: 2017Q3

REPORT INFORMATION
  Report Type: Spontaneous
  Country: ES (occurrence: ES)
  Receive Date: 20170915
  Receipt Date: 20170915
  Transmission Date: 20171128
  Serious: Yes (Disabling, Other)
  Sender: FDA-Public Use
  Company Number: ES-ALLERGAN-1752348US

PATIENT
  Age: 67 Year
  Sex: Male

DRUGS (2)
  1. TRIPTORELIN PAMOATE - BP [Suspect]
     Active Substance: TRIPTORELIN PAMOATE
     Indication: PRODUCT USED FOR UNKNOWN INDICATION
     Dosage: 1 DF, EVERY 6 MONTHS
     Route: 065
     Dates: start: 20161230, end: 20161230
  2. TRIPTORELIN PAMOATE - BP [Suspect]
     Active Substance: TRIPTORELIN PAMOATE
     Dosage: 1 DF, EVERY 6 MONTHS
     Route: 065
     Dates: start: 20170630, end: 20170630

REACTIONS (3)
  - Dizziness postural [Not Recovered/Not Resolved]
  - Blood glucose increased [Unknown]
  - Blood triglycerides increased [Unknown]

NARRATIVE: CASE EVENT DATE: 201701
